FAERS Safety Report 10897981 (Version 1)
Quarter: 2015Q1

REPORT INFORMATION
  Report Type: Spontaneous
  Country: FR (occurrence: FR)
  Receive Date: 20150309
  Receipt Date: 20150309
  Transmission Date: 20150721
  Serious: Yes (Life-Threatening, Hospitalization)
  Sender: FDA-Public Use
  Company Number: FR-009507513-1503FRA003385

PATIENT
  Age: 68 Year
  Sex: Male

DRUGS (3)
  1. PROPOFOL. [Suspect]
     Active Substance: PROPOFOL
     Dosage: UNK, ONCE
     Route: 042
     Dates: start: 20150223, end: 2015
  2. SUFENTA [Suspect]
     Active Substance: SUFENTANIL CITRATE
     Dosage: UNK, ONCE
     Route: 042
     Dates: start: 20150223, end: 2015
  3. ESMERON [Suspect]
     Active Substance: ROCURONIUM BROMIDE
     Dosage: UNK, ONCE
     Route: 042
     Dates: start: 20150223, end: 2015

REACTIONS (2)
  - Cardio-respiratory arrest [Recovering/Resolving]
  - Anaphylactic shock [Recovering/Resolving]

NARRATIVE: CASE EVENT DATE: 20150223
